FAERS Safety Report 14305045 (Version 1)
Quarter: 2017Q4

REPORT INFORMATION
  Report Type: Report from Study
  Country: JP (occurrence: JP)
  Receive Date: 20171219
  Receipt Date: 20171219
  Transmission Date: 20180321
  Serious: Yes (Hospitalization)
  Sender: FDA-Public Use
  Company Number: JP-OTSUKA-JP-2012-11962

PATIENT
  Age: 64 Year
  Sex: Male
  Weight: 63 kg

DRUGS (13)
  1. WYPAX [Concomitant]
     Active Substance: LORAZEPAM
     Dosage: 2 MG, QD
     Route: 048
     Dates: start: 20111223, end: 20111226
  2. ARIPIPRAZOLE. [Suspect]
     Active Substance: ARIPIPRAZOLE
     Dosage: 24 MG, QD
     Route: 048
     Dates: start: 20111230, end: 20120116
  3. WYPAX [Concomitant]
     Active Substance: LORAZEPAM
     Indication: SCHIZOPHRENIA
     Dosage: 3 MG, QD
     Route: 048
     Dates: start: 20111213, end: 20111222
  4. ARIPIPRAZOLE. [Suspect]
     Active Substance: ARIPIPRAZOLE
     Indication: SCHIZOPHRENIA
     Dosage: 6 MG, QD
     Route: 048
     Dates: start: 20111213, end: 20111213
  5. ARIPIPRAZOLE. [Suspect]
     Active Substance: ARIPIPRAZOLE
     Dosage: 12 MG, QD
     Route: 048
     Dates: start: 20120128, end: 20120130
  6. ARIPIPRAZOLE. [Suspect]
     Active Substance: ARIPIPRAZOLE
     Dosage: 6 MG, QD
     Route: 048
     Dates: start: 20120131
  7. ROHYPNOL [Concomitant]
     Active Substance: FLUNITRAZEPAM
     Indication: SCHIZOPHRENIA
     Dosage: 1 MG, QD
     Route: 048
     Dates: start: 20111213
  8. WYPAX [Concomitant]
     Active Substance: LORAZEPAM
     Dosage: 1 MG, QD
     Route: 048
     Dates: start: 20111227, end: 20120105
  9. NORVASC [Concomitant]
     Active Substance: AMLODIPINE BESYLATE
     Indication: PRODUCT USED FOR UNKNOWN INDICATION
     Dosage: 5 MG, QD
     Route: 048
  10. ARIPIPRAZOLE. [Suspect]
     Active Substance: ARIPIPRAZOLE
     Dosage: 18 MG, QD
     Route: 048
     Dates: start: 20120117, end: 20120127
  11. ABILIFY [Suspect]
     Active Substance: ARIPIPRAZOLE
     Indication: SCHIZOPHRENIA
     Dosage: 12MG:14DE-29DE11:16D;28JAN-30JAN12:3D  24MG:30DE-16JA12:18D  18MG:17JA-27JA12:11D  6MG:31JA12-ONG
     Route: 048
     Dates: start: 20111213
  12. LENDORMIN [Concomitant]
     Active Substance: BROTIZOLAM
     Indication: SCHIZOPHRENIA
     Dosage: 0.25 MG, QD
     Route: 048
     Dates: start: 20111213
  13. ARIPIPRAZOLE. [Suspect]
     Active Substance: ARIPIPRAZOLE
     Dosage: 12 MG, QD
     Route: 048
     Dates: start: 20111214, end: 20111229

REACTIONS (3)
  - Salivary hypersecretion [Not Recovered/Not Resolved]
  - Dysarthria [Unknown]
  - Oromandibular dystonia [Not Recovered/Not Resolved]

NARRATIVE: CASE EVENT DATE: 20120105
